FAERS Safety Report 4595789-5 (Version None)
Quarter: 2005Q1

REPORT INFORMATION
  Report Type: 
  Country: None (occurrence: None)
  Receive Date: 20050224
  Receipt Date: 20050208
  Transmission Date: 20050727
  Serious: Yes (Life-Threatening)
  Sender: FDA-Public Use
  Company Number: EWC050242604

PATIENT
  Age: 68 Year
  Sex: Female

DRUGS (1)
  1. EVISTA [Suspect]
     Indication: OSTEOPOROSIS
     Dosage: 60 MG DAY
     Dates: start: 20040826

REACTIONS (2)
  - BLINDNESS UNILATERAL [None]
  - RETINAL VEIN THROMBOSIS [None]
